FAERS Safety Report 11723848 (Version 16)
Quarter: 2017Q1

REPORT INFORMATION
  Report Type: Report from Study
  Country: US (occurrence: US)
  Receive Date: 20151111
  Receipt Date: 20170210
  Transmission Date: 20170428
  Serious: Yes (Life-Threatening, Hospitalization, Other)
  Sender: FDA-Public Use
  Company Number: US-SA-2015SA177858

PATIENT
  Age: 43 Year
  Sex: Female

DRUGS (7)
  1. LEMTRADA [Suspect]
     Active Substance: ALEMTUZUMAB
     Indication: MULTIPLE SCLEROSIS
     Route: 041
     Dates: start: 20151012, end: 20151016
  2. RITALIN [Concomitant]
     Active Substance: METHYLPHENIDATE HYDROCHLORIDE
     Indication: PAIN
  3. VALTREX [Concomitant]
     Active Substance: VALACYCLOVIR HYDROCHLORIDE
  4. ZANAFLEX [Concomitant]
     Active Substance: TIZANIDINE HYDROCHLORIDE
     Indication: PAIN
  5. OXYCODONE [Concomitant]
     Active Substance: OXYCODONE
     Indication: PAIN
  6. FENTANYL. [Concomitant]
     Active Substance: FENTANYL
     Indication: PAIN
  7. SOLU-MEDROL [Concomitant]
     Active Substance: METHYLPREDNISOLONE SODIUM SUCCINATE
     Dates: start: 201510

REACTIONS (60)
  - Sputum discoloured [Unknown]
  - Cognitive disorder [Unknown]
  - Contusion [Recovered/Resolved]
  - Pyrexia [Not Recovered/Not Resolved]
  - CD4 lymphocytes decreased [Not Recovered/Not Resolved]
  - Rash papular [Recovered/Resolved]
  - Vomiting [Unknown]
  - Bradycardia [Unknown]
  - Balance disorder [Unknown]
  - Laboratory test abnormal [Not Recovered/Not Resolved]
  - Bed rest [Not Recovered/Not Resolved]
  - Urinary tract infection [Unknown]
  - Pneumonia [Unknown]
  - Chest pain [Unknown]
  - Adrenal disorder [Not Recovered/Not Resolved]
  - Neoplasm malignant [Unknown]
  - Upper respiratory tract infection [Not Recovered/Not Resolved]
  - Lymphadenopathy [Unknown]
  - Fall [Unknown]
  - Staphylococcal infection [Not Recovered/Not Resolved]
  - Productive cough [Recovering/Resolving]
  - Dysuria [Unknown]
  - Facial pain [Unknown]
  - Thyroid mass [Not Recovered/Not Resolved]
  - Tenderness [Unknown]
  - Chest pain [Recovered/Resolved]
  - Skin discolouration [Not Recovered/Not Resolved]
  - Anxiety [Not Recovered/Not Resolved]
  - Headache [Recovered/Resolved]
  - Lymphocyte count increased [Unknown]
  - Sensory loss [Not Recovered/Not Resolved]
  - Weight decreased [Not Recovered/Not Resolved]
  - Dyspnoea [Not Recovered/Not Resolved]
  - Wheezing [Not Recovered/Not Resolved]
  - Lymphopenia [Unknown]
  - Fatigue [Unknown]
  - Impaired gastric emptying [Not Recovered/Not Resolved]
  - Petechiae [Not Recovered/Not Resolved]
  - Urine ketone body present [Not Recovered/Not Resolved]
  - Malaise [Unknown]
  - Pain of skin [Unknown]
  - Hypersomnia [Unknown]
  - Memory impairment [Unknown]
  - Oxygen saturation decreased [Unknown]
  - White blood cell count decreased [Not Recovered/Not Resolved]
  - Bronchitis [Unknown]
  - Rash [Unknown]
  - Cellulitis [Not Recovered/Not Resolved]
  - Narcolepsy [Not Recovered/Not Resolved]
  - General physical condition abnormal [Unknown]
  - Thinking abnormal [Not Recovered/Not Resolved]
  - Sputum discoloured [Not Recovered/Not Resolved]
  - Night sweats [Not Recovered/Not Resolved]
  - Abasia [Not Recovered/Not Resolved]
  - Hospitalisation [Unknown]
  - CD4 lymphocytes increased [Recovered/Resolved]
  - Speech disorder [Not Recovered/Not Resolved]
  - Feeding disorder [Unknown]
  - Nausea [Unknown]
  - Decreased appetite [Not Recovered/Not Resolved]

NARRATIVE: CASE EVENT DATE: 2015
